FAERS Safety Report 22926556 (Version 6)
Quarter: 2024Q3

REPORT INFORMATION
  Report Type: Report from Study
  Country: CA (occurrence: CA)
  Receive Date: 20230909
  Receipt Date: 20240930
  Transmission Date: 20241017
  Serious: Yes (Hospitalization, Other)
  Sender: SANDOZ
  Company Number: CA-002147023-NVSC2023CA054831

PATIENT
  Age: 74 Year
  Sex: Female

DRUGS (4)
  1. HYRIMOZ [Suspect]
     Active Substance: ADALIMUMAB-ADAZ
     Dosage: 40 MG
     Route: 058
  2. HYRIMOZ [Suspect]
     Active Substance: ADALIMUMAB-ADAZ
     Indication: Crohn^s disease
     Dosage: 40MG S/C EVERY WEEK;WEEKLY
     Route: 058
     Dates: start: 20220204
  3. METHOTREXATE [Concomitant]
     Active Substance: METHOTREXATE
     Indication: Musculoskeletal discomfort
     Dosage: UNK
     Route: 065
  4. XARELTO [Concomitant]
     Active Substance: RIVAROXABAN
     Indication: Product used for unknown indication
     Dosage: UNK
     Route: 065

REACTIONS (10)
  - Urosepsis [Unknown]
  - General physical condition abnormal [Unknown]
  - Hypergammaglobulinaemia benign monoclonal [Unknown]
  - Anaemia [Unknown]
  - Infection [Unknown]
  - Urinary tract infection [Unknown]
  - Pneumonia [Unknown]
  - Haematuria [Unknown]
  - Product dose omission issue [Unknown]
  - Off label use [Unknown]

NARRATIVE: CASE EVENT DATE: 20220204
